FAERS Safety Report 13341479 (Version 1)
Quarter: 2017Q1

REPORT INFORMATION
  Report Type: Spontaneous
  Country: US (occurrence: US)
  Receive Date: 20170316
  Receipt Date: 20170316
  Transmission Date: 20170428
  Serious: No
  Sender: FDA-Public Use
  Company Number: US-ROCHE-1843207

PATIENT
  Sex: Male

DRUGS (5)
  1. ERIVEDGE [Suspect]
     Active Substance: VISMODEGIB
     Indication: BASAL CELL CARCINOMA
     Route: 048
     Dates: start: 20160521
  2. DRISDOL [Concomitant]
     Active Substance: ERGOCALCIFEROL
  3. ACETAMINOPHEN. [Concomitant]
     Active Substance: ACETAMINOPHEN
  4. FINASTERIDE. [Concomitant]
     Active Substance: FINASTERIDE
  5. DEPAKOTE [Concomitant]
     Active Substance: DIVALPROEX SODIUM

REACTIONS (2)
  - Musculoskeletal stiffness [Unknown]
  - Myalgia [Unknown]
